FAERS Safety Report 13257579 (Version 1)
Quarter: 2017Q1

REPORT INFORMATION
  Report Type: Report from Study
  Country: CO (occurrence: CO)
  Receive Date: 20170221
  Receipt Date: 20170221
  Transmission Date: 20170428
  Serious: Yes (Other)
  Sender: FDA-Public Use
  Company Number: CO-REGENERON PHARMACEUTICALS, INC.-2017-12043

PATIENT

DRUGS (1)
  1. EYLEA [Suspect]
     Active Substance: AFLIBERCEPT
     Indication: AGE-RELATED MACULAR DEGENERATION
     Dosage: 2 MG, (RECEIVED ONLY ONE INJECTION OF EYLEA ON RIGHT EYE)
     Route: 031
     Dates: start: 20130515

REACTIONS (1)
  - Blindness unilateral [Not Recovered/Not Resolved]
